FAERS Safety Report 12762812 (Version 1)
Quarter: 2016Q3

REPORT INFORMATION
  Report Type: Spontaneous
  Country: JP (occurrence: JP)
  Receive Date: 20160920
  Receipt Date: 20160920
  Transmission Date: 20161109
  Serious: Yes (Hospitalization)
  Sender: FDA-Public Use
  Company Number: JP-OTSUKA-02100-JPN-03-0010

PATIENT
  Age: 61 Year
  Sex: Female
  Weight: 52 kg

DRUGS (7)
  1. COLAC [Concomitant]
     Indication: CONSTIPATION
     Dosage: 2 DF, QD
     Route: 048
     Dates: start: 20030105, end: 20030105
  2. UNICALIQ L [Concomitant]
     Indication: PRODUCT USED FOR UNKNOWN INDICATION
     Dosage: UNK
     Route: 041
     Dates: start: 20030105, end: 20030208
  3. OPALMON [Suspect]
     Active Substance: LIMAPROST
     Dosage: UNK
     Route: 048
     Dates: start: 20030105, end: 20030105
  4. OPALMON [Suspect]
     Active Substance: LIMAPROST
     Indication: PRODUCT USED FOR UNKNOWN INDICATION
     Dosage: 10 UG, TID
     Route: 048
     Dates: start: 20021129, end: 20021201
  5. UNICALIQ N [Concomitant]
     Indication: PRODUCT USED FOR UNKNOWN INDICATION
     Dosage: UNK
     Route: 041
     Dates: start: 20030105, end: 20030208
  6. PLETAAL TABLETS 50MG [Suspect]
     Active Substance: CILOSTAZOL
     Indication: PERIPHERAL ARTERIAL OCCLUSIVE DISEASE
     Dosage: 50 MG, TID
     Route: 048
     Dates: start: 20021129, end: 20021201
  7. PLETAAL TABLETS 50MG [Suspect]
     Active Substance: CILOSTAZOL
     Dosage: 50 MG, QD
     Route: 048
     Dates: start: 20030105, end: 20030105

REACTIONS (4)
  - Constipation [Unknown]
  - Hepatic function abnormal [Unknown]
  - Large intestinal ulcer haemorrhage [Recovering/Resolving]
  - Duodenal ulcer [Recovering/Resolving]

NARRATIVE: CASE EVENT DATE: 20030106
